FAERS Safety Report 9477412 (Version 1)
Quarter: 2013Q3

REPORT INFORMATION
  Report Type: Spontaneous
  Country: US (occurrence: US)
  Receive Date: 20130826
  Receipt Date: 20130826
  Transmission Date: 20140515
  Serious: Yes (Other)
  Sender: FDA-Public Use
  Company Number: US-RB-057483-13

PATIENT
  Age: 38 Year
  Sex: Female

DRUGS (5)
  1. SUBOXONE FILM [Suspect]
     Indication: DRUG DEPENDENCE
     Dosage: SUBOXONE FILM
     Route: 060
     Dates: start: 2011
  2. CYMBALTA [Concomitant]
     Indication: NEURALGIA
     Dosage: DOSING DETAILS UNKNOWN
     Route: 048
  3. GRALISE [Concomitant]
     Indication: NEURALGIA
     Dosage: DOSING DETAILS UNKNOWN
     Route: 048
  4. LASIX [Concomitant]
     Indication: SWELLING
     Dosage: DOSING DETAILS UNKNOWN
     Route: 048
  5. WELLBUTRIN [Concomitant]
     Indication: DEPRESSION
     Dosage: DOSING DETAILS UNKNOWN
     Route: 048

REACTIONS (1)
  - Breast cancer recurrent [Not Recovered/Not Resolved]
